FAERS Safety Report 17937448 (Version 1)
Quarter: 2020Q2

REPORT INFORMATION
  Report Type: Spontaneous
  Country: IE (occurrence: IE)
  Receive Date: 20200624
  Receipt Date: 20200624
  Transmission Date: 20200714
  Serious: Yes (Other)
  Sender: FDA-Public Use
  Company Number: IE-TEVA-2020-IE-1790087

PATIENT
  Age: 38 Year
  Sex: Female

DRUGS (2)
  1. HYDROCORTISONE (GENERIC) [Concomitant]
     Dosage: MAINTENANCE
     Route: 048
  2. CIPROFLOXACIN (GENERIC) [Suspect]
     Active Substance: CIPROFLOXACIN
     Indication: SKIN INFECTION
     Route: 048

REACTIONS (1)
  - Neurotoxicity [Unknown]

NARRATIVE: CASE EVENT DATE: 20200116
